FAERS Safety Report 7238339-7 (Version None)
Quarter: 2011Q1

REPORT INFORMATION
  Report Type: 
  Country: None (occurrence: None)
  Receive Date: 20110121
  Receipt Date: 20101016
  Transmission Date: 20110831
  Serious: Yes (Other)
  Sender: FDA-Public Use
  Company Number: IL-BRISTOL-MYERS SQUIBB COMPANY-15499478

PATIENT
  Age: 45 Year
  Sex: Female

DRUGS (1)
  1. BARACLUDE [Suspect]
     Dates: start: 20100501

REACTIONS (1)
  - LOSS OF CONSCIOUSNESS [None]
